FAERS Safety Report 10186413 (Version 1)
Quarter: 2014Q2

REPORT INFORMATION
  Report Type: Spontaneous
  Country: US (occurrence: US)
  Receive Date: 20140521
  Receipt Date: 20140521
  Transmission Date: 20141212
  Serious: No
  Sender: FDA-Public Use
  Company Number: US-ASTRAZENECA-2013SE81798

PATIENT
  Age: 58 Year
  Sex: Male
  Weight: 99.8 kg

DRUGS (1)
  1. PULMICORT FLEXHALER [Suspect]
     Dosage: 180MCG 2 PUFFS BID
     Route: 055

REACTIONS (7)
  - Confusional state [Unknown]
  - Asthma [Unknown]
  - Emphysema [Unknown]
  - Chronic obstructive pulmonary disease [Unknown]
  - Dyspnoea [Unknown]
  - Frustration [None]
  - Circumstance or information capable of leading to medication error [Unknown]
